FAERS Safety Report 11769378 (Version 2)
Quarter: 2015Q4

REPORT INFORMATION
  Report Type: Spontaneous
  Country: US (occurrence: US)
  Receive Date: 20151123
  Receipt Date: 20151125
  Transmission Date: 20160304
  Serious: Yes (Death, Disabling, Other)
  Sender: FDA-Public Use
  Company Number: US-BAYER-2015-465763

PATIENT
  Sex: Female
  Weight: 32 kg

DRUGS (1)
  1. BETASERON [Suspect]
     Active Substance: INTERFERON BETA-1B
     Indication: MULTIPLE SCLEROSIS

REACTIONS (10)
  - Underweight [None]
  - Injection site mass [None]
  - Bladder dysfunction [None]
  - Muscle disorder [None]
  - Drug ineffective [None]
  - Multiple sclerosis [Fatal]
  - Dysphagia [None]
  - Gait disturbance [None]
  - Movement disorder [None]
  - Intentional product use issue [None]
